FAERS Safety Report 7469586-7 (Version None)
Quarter: 2011Q2

REPORT INFORMATION
  Report Type: 
  Country: None (occurrence: None)
  Receive Date: 20110510
  Receipt Date: 20110429
  Transmission Date: 20111010
  Serious: Yes (Other)
  Sender: FDA-Public Use
  Company Number: PHHY2011HR36925

PATIENT
  Age: 24 Year
  Sex: Female

DRUGS (2)
  1. PHENOBARBITAL TAB [Interacting]
     Indication: EPILEPSY
     Dosage: 200 MG, UNK
  2. TRILEPTAL [Suspect]
     Indication: EPILEPSY
     Dosage: 600 MG, UNK
     Route: 048

REACTIONS (3)
  - DRUG INTERACTION [None]
  - SOMNOLENCE [None]
  - PSYCHOMOTOR SKILLS IMPAIRED [None]
